FAERS Safety Report 6437111-5 (Version None)
Quarter: 2009Q4

REPORT INFORMATION
  Report Type: 
  Country: None (occurrence: None)
  Receive Date: 20091112
  Receipt Date: 20091103
  Transmission Date: 20100525
  Serious: Yes (Hospitalization, Other)
  Sender: FDA-Public Use
  Company Number: US-JNJFOC-20091101214

PATIENT
  Sex: Male
  Weight: 108.86 kg

DRUGS (3)
  1. REMICADE [Suspect]
     Route: 042
     Dates: start: 20000101, end: 20091009
  2. REMICADE [Suspect]
     Indication: CROHN'S DISEASE
     Route: 042
     Dates: start: 20000101, end: 20091009
  3. CYMBALTA [Concomitant]
     Indication: DEPRESSION

REACTIONS (6)
  - ABDOMINAL OPERATION [None]
  - COLECTOMY [None]
  - DIARRHOEA [None]
  - FLATULENCE [None]
  - MUSCLE SPASMS [None]
  - PERITONITIS [None]
